FAERS Safety Report 6913054-5 (Version None)
Quarter: 2010Q3

REPORT INFORMATION
  Report Type: 
  Country: None (occurrence: None)
  Receive Date: 20100806
  Receipt Date: 20090616
  Transmission Date: 20110219
  Serious: No
  Sender: FDA-Public Use
  Company Number: US-PFIZER INC-2009191836

PATIENT
  Sex: Male
  Weight: 70 kg

DRUGS (9)
  1. DETROL LA [Suspect]
     Indication: URINARY INCONTINENCE
     Dosage: 4 MG, 1X/DAY
     Route: 048
     Dates: start: 20080101
  2. ARICEPT [Concomitant]
     Dosage: UNK
  3. TRAMADOL [Concomitant]
     Dosage: UNK
  4. KLOR-CON [Concomitant]
  5. AMLODIPINE [Concomitant]
     Dosage: UNK
  6. DIGOXIN [Concomitant]
     Dosage: UNK
  7. WARFARIN SODIUM [Concomitant]
     Dosage: UNK
  8. FUROSEMIDE [Concomitant]
     Dosage: UNK
  9. POTASSIUM [Concomitant]
     Dosage: UNK

REACTIONS (1)
  - DRUG INEFFECTIVE [None]
